FAERS Safety Report 23647205 (Version 1)
Quarter: 2024Q1

REPORT INFORMATION
  Report Type: Spontaneous
  Country: US (occurrence: US)
  Receive Date: 20240319
  Receipt Date: 20240319
  Transmission Date: 20240410
  Serious: Yes (Other)
  Sender: FDA-Public Use
  Company Number: US-TEVA-VS-3171459

PATIENT
  Age: 66 Year
  Sex: Male

DRUGS (6)
  1. UZEDY [Suspect]
     Active Substance: RISPERIDONE
     Indication: Schizophrenia
     Dosage: STRENGTH AND DOSAGE: 125 MG/0.35 ML
     Route: 065
  2. ACETAMINOPHEN [Concomitant]
     Active Substance: ACETAMINOPHEN
     Indication: Product used for unknown indication
  3. ASPIRIN [Concomitant]
     Active Substance: ASPIRIN
     Indication: Product used for unknown indication
  4. DICLOFENAC SODIUM [Concomitant]
     Active Substance: DICLOFENAC\DICLOFENAC SODIUM
     Indication: Product used for unknown indication
  5. MIRTAZAPINE [Concomitant]
     Active Substance: MIRTAZAPINE
     Indication: Product used for unknown indication
  6. OMEPRAZOLE [Concomitant]
     Active Substance: OMEPRAZOLE
     Indication: Product used for unknown indication

REACTIONS (19)
  - Hallucination, visual [Unknown]
  - Social problem [Unknown]
  - Irritability [Unknown]
  - Depressed mood [Unknown]
  - Decreased appetite [Unknown]
  - Hyperphagia [Unknown]
  - Discomfort [Unknown]
  - Disturbance in attention [Unknown]
  - Sleep disorder [Unknown]
  - Anxiety [Unknown]
  - Social avoidant behaviour [Unknown]
  - Depression [Unknown]
  - Feeling of despair [Unknown]
  - Self-injurious ideation [Unknown]
  - Apathy [Unknown]
  - Thinking abnormal [Unknown]
  - Restlessness [Unknown]
  - Fear [Unknown]
  - Nervousness [Unknown]
